FAERS Safety Report 15855678 (Version 2)
Quarter: 2019Q1

REPORT INFORMATION
  Report Type: Spontaneous
  Country: FR (occurrence: FR)
  Receive Date: 20190122
  Receipt Date: 20190301
  Transmission Date: 20190417
  Serious: Yes (Other)
  Sender: FDA-Public Use
  Company Number: FR-GILEAD-2019-0385082

PATIENT
  Age: 50 Year
  Sex: Male

DRUGS (4)
  1. PENICILLIN G SODIUM. [Suspect]
     Active Substance: PENICILLIN G SODIUM
     Indication: NEUROSYPHILIS
  2. COBICISTAT [Suspect]
     Active Substance: COBICISTAT
     Indication: HIV INFECTION
     Dosage: UNK, UNK
     Route: 065
  3. PENICILLIN G SODIUM. [Suspect]
     Active Substance: PENICILLIN G SODIUM
     Indication: UVEITIS
     Dosage: UNK, UNK
     Route: 042
  4. ASPIRIN [ACETYLSALICYLIC ACID] [Concomitant]
     Active Substance: ASPIRIN
     Indication: NEUROSYPHILIS
     Dosage: 160 MG, UNK
     Route: 065

REACTIONS (3)
  - Hemianaesthesia [Recovering/Resolving]
  - Central nervous system vasculitis [Recovering/Resolving]
  - Drug ineffective [Recovered/Resolved]
